FAERS Safety Report 5525671-8 (Version None)
Quarter: 2007Q4

REPORT INFORMATION
  Report Type: 
  Country: None (occurrence: None)
  Receive Date: 20071126
  Receipt Date: 20070718
  Transmission Date: 20080405
  Serious: Yes (Hospitalization, Other)
  Sender: FDA-Public Use
  Company Number: US-ASTRAZENECA-2007UW12126

PATIENT
  Age: 16064 Day
  Sex: Female
  Weight: 113.6 kg

DRUGS (45)
  1. SEROQUEL [Suspect]
     Indication: BIPOLAR DISORDER
     Dosage: 100 MG TO 800 MG
     Route: 048
     Dates: start: 20011011, end: 20070208
  2. SEROQUEL [Suspect]
     Indication: DEPRESSION
     Dosage: 100 MG TO 800 MG
     Route: 048
     Dates: start: 20011011, end: 20070208
  3. SEROQUEL [Suspect]
     Indication: PERSONALITY DISORDER
     Dosage: 100 MG TO 800 MG
     Route: 048
     Dates: start: 20011011, end: 20070208
  4. PHEN-FEN [Concomitant]
     Dates: start: 19970708, end: 19970908
  5. HALDOL [Concomitant]
     Dates: start: 19960807, end: 19970818
  6. NAVANE [Concomitant]
     Dates: start: 19930101, end: 19951013
  7. ZYPREXA [Concomitant]
     Dates: start: 19971208, end: 20011108
  8. LITHIUM CARBONATE [Concomitant]
     Dates: start: 19980604
  9. INSULIN [Concomitant]
  10. CELEXA [Concomitant]
  11. AVANDIA [Concomitant]
  12. TRILEPTAL [Concomitant]
  13. DILANTIN [Concomitant]
  14. TOPAMAX [Concomitant]
  15. TEGRETOL [Concomitant]
     Dosage: 200 MG QAM, 400 MG QPM
  16. AMBIEN [Concomitant]
  17. XANAX [Concomitant]
  18. ALLEGRA D 24 HOUR [Concomitant]
  19. COMBIVENT [Concomitant]
  20. DEMEDEX [Concomitant]
  21. DETROL [Concomitant]
  22. DIOVAN [Concomitant]
  23. DYINEB [Concomitant]
  24. GLIBURIDE [Concomitant]
  25. HUMALOG [Concomitant]
     Dosage: 75/25 35 UNITS AM AND PM
  26. IMDUR [Concomitant]
  27. LISINOPRIL [Concomitant]
  28. PLAVIX [Concomitant]
  29. POTASSIUM CHLORIDE [Concomitant]
  30. PROTONIX [Concomitant]
  31. PULMACORT [Concomitant]
  32. REGLAN [Concomitant]
  33. METHYLPHENIDATE HCL [Concomitant]
  34. WELLBUTRIN [Concomitant]
  35. DIPHENHYDRAMINE HCL [Concomitant]
  36. PHENYTOIN SODIUM [Concomitant]
  37. BIAXIN [Concomitant]
  38. BUTALBITAL ACETAMINOPHEN AND CAFFEINE [Concomitant]
  39. ISOSORBIDE MONONITRATE [Concomitant]
  40. TIZANIDINE HCL [Concomitant]
  41. ZYRTEC-D [Concomitant]
  42. DICLOFENAC SODIUM [Concomitant]
  43. CHANTIX [Concomitant]
  44. TOPAMAX [Concomitant]
  45. PREDNISONE TAB [Concomitant]

REACTIONS (15)
  - BALANCE DISORDER [None]
  - BRADYCARDIA [None]
  - CATARACT OPERATION [None]
  - CHOLECYSTITIS CHRONIC [None]
  - CONVULSION [None]
  - DIABETIC COMPLICATION [None]
  - DYSPNOEA [None]
  - HYPONATRAEMIA [None]
  - HYPOTENSION [None]
  - NERVOUS SYSTEM DISORDER [None]
  - ORTHOPNOEA [None]
  - PANCREATITIS ACUTE [None]
  - PNEUMONIA [None]
  - RENAL IMPAIRMENT [None]
  - TREMOR [None]
